FAERS Safety Report 19950071 (Version 3)
Quarter: 2021Q4

REPORT INFORMATION
  Report Type: Spontaneous
  Country: US (occurrence: US)
  Receive Date: 20211013
  Receipt Date: 20211125
  Transmission Date: 20220303
  Serious: No
  Sender: FDA-Public Use
  Company Number: US-GSKCCFUS-CASE-01185152_AE-69385

PATIENT
  Sex: Female

DRUGS (1)
  1. NUCALA [Suspect]
     Active Substance: MEPOLIZUMAB
     Indication: Asthma
     Dosage: 100 MG/ML
     Dates: start: 20210908

REACTIONS (4)
  - Adverse drug reaction [Recovered/Resolved]
  - Exposure via skin contact [Unknown]
  - Incorrect dose administered [Unknown]
  - Product complaint [Unknown]
